FAERS Safety Report 9481618 (Version 2)
Quarter: 2013Q3

REPORT INFORMATION
  Report Type: Spontaneous
  Country: CA (occurrence: CA)
  Receive Date: 20130828
  Receipt Date: 20130828
  Transmission Date: 20140515
  Serious: Yes (Hospitalization, Other)
  Sender: FDA-Public Use
  Company Number: CA-AMGEN-KDL159213

PATIENT
  Age: 56 Year
  Sex: Female
  Weight: 50 kg

DRUGS (4)
  1. ENBREL [Suspect]
     Indication: RHEUMATOID ARTHRITIS
     Dosage: 25 MG, 2 TIMES/WK
     Route: 058
     Dates: start: 20031030, end: 20051012
  2. HYDROXYCHLOROQUINE SULFATE [Concomitant]
     Dosage: 200 MG, QD
  3. ACETAMINOPHEN [Concomitant]
     Dosage: UNK UNK, BID
     Route: 048
  4. CANDESARTAN CILEXETIL [Concomitant]

REACTIONS (2)
  - Squamous cell carcinoma of the tongue [Unknown]
  - Recurrent cancer [Unknown]
